FAERS Safety Report 15385256 (Version 1)
Quarter: 2018Q3

REPORT INFORMATION
  Report Type: Spontaneous
  Country: US (occurrence: US)
  Receive Date: 20180914
  Receipt Date: 20180914
  Transmission Date: 20181010
  Serious: No
  Sender: FDA-Public Use
  Company Number: US-SA-2018SA253673

PATIENT
  Age: 14 Year
  Sex: Female

DRUGS (1)
  1. DUPIXENT [Suspect]
     Active Substance: DUPILUMAB
     Indication: DERMATITIS ATOPIC
     Dosage: 300 MG, QOW
     Route: 058
     Dates: start: 201802

REACTIONS (8)
  - Rash [Unknown]
  - Depressed mood [Unknown]
  - Drug administered to patient of inappropriate age [Unknown]
  - Muscular weakness [Unknown]
  - Fatigue [Unknown]
  - Dysstasia [Unknown]
  - Eye swelling [Unknown]
  - Dermatitis [Unknown]

NARRATIVE: CASE EVENT DATE: 201803
